FAERS Safety Report 10246696 (Version 1)
Quarter: 2014Q1

REPORT INFORMATION
  Report Type: Spontaneous
  Country: US (occurrence: None)
  Receive Date: 20140306
  Receipt Date: 20140306
  Transmission Date: 20141002
  Serious: Yes (Other)
  Sender: FDA-Public Use
  Company Number: 163-21880-13042744

PATIENT
  Age: 81 Year
  Sex: Male

DRUGS (3)
  1. REVLIMID (LENALIDOMIDE) (10 MILLIGRAM, CAPSULES) [Suspect]
     Indication: HEREDITARY HAEMORRHAGIC TELANGIECTASIA
     Route: 048
     Dates: start: 201104
  2. REVLIMID (LENALIDOMIDE) (10 MILLIGRAM, CAPSULES) [Suspect]
     Indication: VON WILLEBRAND^S DISEASE
     Route: 048
     Dates: start: 201104
  3. SINEMET (UNKNOWN) [Suspect]
     Indication: PARKINSON^S DISEASE
     Dosage: UNKNOWN

REACTIONS (1)
  - Hallucination [None]
